FAERS Safety Report 5525351-9 (Version None)
Quarter: 2007Q4

REPORT INFORMATION
  Report Type: 
  Country: None (occurrence: None)
  Receive Date: 20071120
  Receipt Date: 20071113
  Transmission Date: 20080405
  Serious: Yes (Death, Hospitalization, Other)
  Sender: FDA-Public Use
  Company Number: 163-21880-07081509

PATIENT
  Age: 85 Year
  Sex: Male

DRUGS (14)
  1. REVLIMID [Suspect]
     Indication: SARCOMA
     Dosage: 20 MG, QD X14 DAYS, ORAL
     Route: 048
     Dates: start: 20070807, end: 20070820
  2. DOCETAXEL [Suspect]
     Indication: SARCOMA
     Dosage: 50 MG/M2, Q3WEEKS, INTRAVENOUS
     Route: 042
     Dates: start: 20070807
  3. IMDUR [Concomitant]
  4. GLIPIZIDE [Concomitant]
  5. VICODIN [Concomitant]
  6. MIRALAX [Concomitant]
  7. FLOMAX (ALENDRONATE SODIUM) [Concomitant]
  8. VITAMIN B6 [Concomitant]
  9. FOLIC ACID [Concomitant]
  10. PRILOSEC [Concomitant]
  11. MAGNESIUM (MAGNESIUM) [Concomitant]
  12. POTASSIUM (POTASSIUM) [Concomitant]
  13. ASPIRIN [Concomitant]
  14. GABAPENTIN [Concomitant]

REACTIONS (14)
  - ARTHRALGIA [None]
  - ATELECTASIS [None]
  - CELLULITIS [None]
  - DEEP VEIN THROMBOSIS [None]
  - DISEASE PROGRESSION [None]
  - FATIGUE [None]
  - HAEMATOCRIT DECREASED [None]
  - HAEMOGLOBIN DECREASED [None]
  - INSOMNIA [None]
  - NEURALGIA [None]
  - PAIN [None]
  - PAIN IN EXTREMITY [None]
  - PLEURAL EFFUSION [None]
  - PNEUMONIA [None]
